FAERS Safety Report 5526071-7 (Version None)
Quarter: 2007Q4

REPORT INFORMATION
  Report Type: 
  Country: None (occurrence: None)
  Receive Date: 20071126
  Receipt Date: 20071112
  Transmission Date: 20080405
  Serious: Yes (Other)
  Sender: FDA-Public Use
  Company Number: FR-GILEAD-2007-0014334

PATIENT
  Sex: Male

DRUGS (3)
  1. TRUVADA [Suspect]
     Indication: HIV INFECTION
     Route: 048
  2. REYATAZ [Concomitant]
     Indication: HIV INFECTION
     Route: 048
  3. NORVIR [Concomitant]
     Indication: HIV INFECTION
     Route: 048

REACTIONS (4)
  - CREATININE RENAL CLEARANCE DECREASED [None]
  - GLYCOSURIA [None]
  - HYPOPHOSPHATAEMIA [None]
  - PROTEINURIA [None]
